FAERS Safety Report 22948430 (Version 5)
Quarter: 2024Q4

REPORT INFORMATION
  Report Type: Spontaneous
  Country: US (occurrence: US)
  Receive Date: 20230915
  Receipt Date: 20241108
  Transmission Date: 20250115
  Serious: No
  Sender: BIOGEN
  Company Number: US-BIOGEN-2023BI01226132

PATIENT
  Sex: Female

DRUGS (7)
  1. VUMERITY [Suspect]
     Active Substance: DIROXIMEL FUMARATE
     Indication: Multiple sclerosis
     Dosage: 1 CAPSULE TWICE DAILY
     Route: 050
     Dates: start: 20230720, end: 2023
  2. VUMERITY [Suspect]
     Active Substance: DIROXIMEL FUMARATE
     Route: 050
     Dates: start: 202403
  3. VITAMIN C [Concomitant]
     Active Substance: ASCORBIC ACID
     Route: 050
  4. VITAMIN D3 [Concomitant]
     Active Substance: CHOLECALCIFEROL
     Route: 050
  5. METHENAMINE [Concomitant]
     Active Substance: METHENAMINE
     Route: 050
  6. VENLAFAXINE HCL [Concomitant]
     Active Substance: VENLAFAXINE HYDROCHLORIDE
     Route: 050
  7. DIETARY SUPPLEMENT\GRAPE SEED EXTRACT [Concomitant]
     Active Substance: DIETARY SUPPLEMENT\GRAPE SEED EXTRACT
     Route: 050

REACTIONS (5)
  - Accidental underdose [Unknown]
  - Prescribed underdose [Unknown]
  - Asthma [Unknown]
  - Hypoacusis [Unknown]
  - Flushing [Unknown]

NARRATIVE: CASE EVENT DATE: 20230101
